FAERS Safety Report 10952015 (Version 1)
Quarter: 2015Q1

REPORT INFORMATION
  Report Type: Other
  Country: GB (occurrence: GB)
  Receive Date: 20150325
  Receipt Date: 20150325
  Transmission Date: 20150721
  Serious: Yes (Hospitalization, Disabling)
  Sender: FDA-Public Use
  Company Number: GB-SUN PHARMACEUTICAL INDUSTRIES LTD-2015SUN00778

PATIENT

DRUGS (8)
  1. OXALIPLATIN 5MG/ML POWDER FOR SOLUTION FOR INFUSION [Suspect]
     Active Substance: OXALIPLATIN
     Indication: METASTASES TO LUNG
     Dosage: 180 MG, FIRST CYCLE OF CHEMOTHERAPY
     Route: 042
     Dates: start: 20150225
  2. METFORMIN [Concomitant]
     Active Substance: METFORMIN HYDROCHLORIDE
  3. QUININE BISULFATE [Concomitant]
     Active Substance: QUININE BISULFATE
  4. LEVOTHYROXINE [Concomitant]
     Active Substance: LEVOTHYROXINE
  5. SIMVASTATIN. [Concomitant]
     Active Substance: SIMVASTATIN
  6. CAPECITABINE. [Suspect]
     Active Substance: CAPECITABINE
     Indication: METASTASES TO LUNG
     Dosage: 750 MG, BID, FIRST CYCLE OF CHEMOTHERAPY
     Route: 048
     Dates: start: 20150225, end: 20150225
  7. PIOGLITAZONE [Concomitant]
     Active Substance: PIOGLITAZONE
  8. PARACETAMOL [Concomitant]
     Active Substance: ACETAMINOPHEN

REACTIONS (4)
  - Dizziness [Unknown]
  - Paraesthesia [Unknown]
  - Fall [Unknown]
  - Femoral neck fracture [Unknown]

NARRATIVE: CASE EVENT DATE: 20150225
